FAERS Safety Report 4378555-5 (Version None)
Quarter: 2004Q2

REPORT INFORMATION
  Report Type: 
  Country: None (occurrence: None)
  Receive Date: 20040616
  Receipt Date: 20040607
  Transmission Date: 20050107
  Serious: Yes (Other)
  Sender: FDA-Public Use
  Company Number: GB-GLAXOSMITHKLINE-B0335047A

PATIENT
  Age: 43 Year
  Sex: Female
  Weight: 65 kg

DRUGS (1)
  1. ZYBAN [Suspect]
     Dosage: 150MG SEE DOSAGE TEXT
     Route: 065
     Dates: start: 20040416, end: 20040513

REACTIONS (4)
  - ARTHRALGIA [None]
  - DERMATITIS ALLERGIC [None]
  - JOINT SWELLING [None]
  - PRURITUS [None]
